FAERS Safety Report 25099258 (Version 1)
Quarter: 2025Q1

REPORT INFORMATION
  Report Type: Spontaneous
  Country: US (occurrence: US)
  Receive Date: 20250320
  Receipt Date: 20250320
  Transmission Date: 20250408
  Serious: No
  Sender: AMGEN
  Company Number: US-AMGEN-USASP2025054808

PATIENT
  Age: 55 Year
  Sex: Female

DRUGS (30)
  1. OTEZLA [Suspect]
     Active Substance: APREMILAST
     Indication: Psoriatic arthropathy
     Dosage: 30 MILLIGRAM, BID
     Route: 048
     Dates: start: 20250114
  2. PREDNISONE [Suspect]
     Active Substance: PREDNISONE
     Indication: Product used for unknown indication
     Route: 065
  3. ABILIFY [Concomitant]
     Active Substance: ARIPIPRAZOLE
  4. ADVAIR HFA [Concomitant]
     Active Substance: FLUTICASONE PROPIONATE\SALMETEROL XINAFOATE
  5. AVELOX [Concomitant]
     Active Substance: MOXIFLOXACIN HYDROCHLORIDE
  6. AZITHROMYCIN [Concomitant]
     Active Substance: AZITHROMYCIN
  7. ACETAMINOPHEN\CODEINE PHOSPHATE [Concomitant]
     Active Substance: ACETAMINOPHEN\CODEINE PHOSPHATE
  8. CETIRIZINE [Concomitant]
     Active Substance: CETIRIZINE HYDROCHLORIDE
  9. COSENTYX [Concomitant]
     Active Substance: SECUKINUMAB
  10. CYMBALTA [Concomitant]
     Active Substance: DULOXETINE HYDROCHLORIDE
  11. FERROUS SULFATE [Concomitant]
     Active Substance: FERROUS SULFATE
  12. FEXOFENADINE [Concomitant]
     Active Substance: FEXOFENADINE HYDROCHLORIDE
  13. FOLLISTIM AQ [Concomitant]
     Active Substance: FOLLITROPIN
  14. HYDROMET [Concomitant]
     Active Substance: HOMATROPINE METHYLBROMIDE\HYDROCODONE BITARTRATE
  15. INDOMETHACIN [Concomitant]
     Active Substance: INDOMETHACIN
  16. KETOROLAC [Concomitant]
     Active Substance: KETOROLAC TROMETHAMINE
  17. LEUPROLIDE [Concomitant]
     Active Substance: LEUPROLIDE
  18. LEVAQUIN [Concomitant]
     Active Substance: LEVOFLOXACIN
  19. LYRICA [Concomitant]
     Active Substance: PREGABALIN
  20. METHYLPREDNISOLONE [Concomitant]
     Active Substance: METHYLPREDNISOLONE
  21. ONDANSETRON [Concomitant]
     Active Substance: ONDANSETRON
  22. OVIDREL [Concomitant]
     Active Substance: CHORIOGONADOTROPIN ALFA
  23. PROAIR HFA [Concomitant]
     Active Substance: ALBUTEROL SULFATE
  24. PROMETHAZINE [Concomitant]
     Active Substance: PROMETHAZINE HYDROCHLORIDE
  25. SERTRALINE [Concomitant]
     Active Substance: SERTRALINE HYDROCHLORIDE
  26. SINGULAIR [Concomitant]
     Active Substance: MONTELUKAST SODIUM
  27. SKELAXIN [Concomitant]
     Active Substance: METAXALONE
  28. TOPAMAX [Concomitant]
     Active Substance: TOPIRAMATE
  29. VALTREX [Concomitant]
     Active Substance: VALACYCLOVIR HYDROCHLORIDE
  30. VITAMIN D3 [Concomitant]
     Active Substance: CHOLECALCIFEROL

REACTIONS (1)
  - Pain [Unknown]

NARRATIVE: CASE EVENT DATE: 20250201
